FAERS Safety Report 16654742 (Version 1)
Quarter: 2019Q3

REPORT INFORMATION
  Report Type: Spontaneous
  Country: FR (occurrence: FR)
  Receive Date: 20190801
  Receipt Date: 20190801
  Transmission Date: 20191004
  Serious: Yes (Other)
  Sender: FDA-Public Use
  Company Number: FR-TEVA-2019-FR-1084424

PATIENT
  Age: 72 Year
  Sex: Female

DRUGS (1)
  1. NAPROXENE SODIQUE TEVA 550 MG [Suspect]
     Active Substance: NAPROXEN SODIUM
     Route: 065
     Dates: start: 201801

REACTIONS (2)
  - Drug hypersensitivity [Unknown]
  - Swelling face [Unknown]

NARRATIVE: CASE EVENT DATE: 201907
